FAERS Safety Report 9100888 (Version 2)
Quarter: 2013Q1

REPORT INFORMATION
  Report Type: Report from Study
  Country: CA (occurrence: CA)
  Receive Date: 20130215
  Receipt Date: 20130326
  Transmission Date: 20140127
  Serious: Yes (Other)
  Sender: FDA-Public Use
  Company Number: CA-ROCHE-1191348

PATIENT
  Age: 54 Year
  Sex: 0

DRUGS (5)
  1. AVASTIN [Suspect]
     Indication: COLORECTAL CANCER
     Route: 065
     Dates: start: 201103, end: 201106
  2. AVASTIN [Suspect]
     Dosage: DATE OF LAST DOSE: 20/MAR/2013
     Route: 065
  3. FOLINIC ACID [Suspect]
     Indication: COLORECTAL CANCER
     Route: 065
     Dates: start: 201201, end: 201207
  4. 5-FLUOROURACIL [Suspect]
     Indication: COLORECTAL CANCER
     Route: 065
     Dates: start: 201201, end: 201207
  5. IRINOTECAN [Suspect]
     Indication: COLORECTAL CANCER
     Route: 065
     Dates: start: 201201, end: 201207

REACTIONS (2)
  - Disease progression [Unknown]
  - Toxicity to various agents [Unknown]
